FAERS Safety Report 17210612 (Version 1)
Quarter: 2019Q4

REPORT INFORMATION
  Report Type: Report from Study
  Country: US (occurrence: US)
  Receive Date: 20191227
  Receipt Date: 20191227
  Transmission Date: 20200122
  Serious: Yes (Hospitalization, Other)
  Sender: FDA-Public Use
  Company Number: US-GILEAD-2019-0444618

PATIENT
  Age: 15 Year

DRUGS (1)
  1. AZTREONAM LYSINE [Suspect]
     Active Substance: AZTREONAM LYSINE
     Indication: CYSTIC FIBROSIS LUNG
     Dosage: UNK, TID 28 DAYS ON 28 DAYS OFF
     Route: 055
     Dates: start: 20170808

REACTIONS (1)
  - Cystic fibrosis [Unknown]
